FAERS Safety Report 4665912-2 (Version None)
Quarter: 2005Q2

REPORT INFORMATION
  Report Type: 
  Country: None (occurrence: None)
  Receive Date: 20050516
  Receipt Date: 20050516
  Transmission Date: 20051028
  Serious: Yes (Death)
  Sender: FDA-Public Use
  Company Number: None

PATIENT
  Sex: Male
  Weight: 57.7 kg

DRUGS (1)
  1. CETUXIMAB [Suspect]
     Dosage: 400 MG /M2 IV OVER 2 HOURS WEEK 1; 250MG/M2 IV OVER 1 HOUR WEEKLY ON SUBSEQUENT WEEKS
     Route: 042
     Dates: start: 20050325, end: 20050506

REACTIONS (5)
  - CARDIO-RESPIRATORY ARREST [None]
  - FALL [None]
  - HAEMOPTYSIS [None]
  - HAEMORRHAGE [None]
  - LOSS OF CONSCIOUSNESS [None]
